FAERS Safety Report 4805218-1 (Version None)
Quarter: 2005Q4

REPORT INFORMATION
  Report Type: 
  Country: None (occurrence: None)
  Receive Date: 20051017
  Receipt Date: 20051004
  Transmission Date: 20060501
  Serious: Yes (Other)
  Sender: FDA-Public Use
  Company Number: 2005136928

PATIENT
  Age: 83 Year
  Sex: Female
  Weight: 68.0396 kg

DRUGS (6)
  1. VISINE TEARS (GLYCERIN, POLYETHYLENE GLYCOL, HYDROXYPROPYLMETHYLCELLUL [Suspect]
     Indication: DRY EYE
     Dosage: 1 DROP PER EYE 4-5 TIMES PER DAY, OPHTHALMIC
     Route: 047
     Dates: start: 20010101
  2. FUROSEMIDE [Concomitant]
  3. ATENOLOL [Concomitant]
  4. IRBESARTAN [Concomitant]
  5. LEVOTHYROXINE SODIUM [Concomitant]
  6. AMLODIPINE BESYLATE [Concomitant]

REACTIONS (1)
  - MACULAR DEGENERATION [None]
